FAERS Safety Report 21638435 (Version 1)
Quarter: 2022Q4

REPORT INFORMATION
  Report Type: Spontaneous
  Country: US (occurrence: US)
  Receive Date: 20221124
  Receipt Date: 20221124
  Transmission Date: 20230113
  Serious: No
  Sender: FDA-Public Use
  Company Number: US-BIOGEN-2022BI01169261

PATIENT
  Sex: Female

DRUGS (3)
  1. VUMERITY [Suspect]
     Active Substance: DIROXIMEL FUMARATE
     Indication: Multiple sclerosis
     Route: 050
     Dates: start: 20211207
  2. VUMERITY [Suspect]
     Active Substance: DIROXIMEL FUMARATE
     Dosage: MEDICATION TAKING ONLY FOUR PILLS A DAY [TO TWO PILLS A DAY TO MAKE IT LAST LONGER]
     Route: 050
  3. VUMERITY [Suspect]
     Active Substance: DIROXIMEL FUMARATE
     Dosage: [MEDICATION TAKING ONLY FOUR PILLS A DAY] TO TWO PILLS A DAY TO MAKE IT LAST LONGER.
     Route: 050

REACTIONS (2)
  - Intentional product misuse [Unknown]
  - Throat irritation [Unknown]
